FAERS Safety Report 13524041 (Version 8)
Quarter: 2018Q1

REPORT INFORMATION
  Report Type: Spontaneous
  Country: US (occurrence: US)
  Receive Date: 20170508
  Receipt Date: 20180323
  Transmission Date: 20180508
  Serious: Yes (Congenital Anomaly, Other)
  Sender: FDA-Public Use
  Company Number: PHEH2017US013541

PATIENT
  Sex: Female

DRUGS (2)
  1. ZOFRAN [Suspect]
     Active Substance: ONDANSETRON HYDROCHLORIDE
     Indication: FOETAL EXPOSURE DURING PREGNANCY
     Dosage: MOTHER DOSE: 08 MG, Q6H
     Route: 064
  2. ZOFRAN [Suspect]
     Active Substance: ONDANSETRON HYDROCHLORIDE
     Indication: FOETAL EXPOSURE DURING PREGNANCY
     Dosage: MOTHER DOSE: 08 MG, Q6H
     Route: 064

REACTIONS (78)
  - Cleft palate [Unknown]
  - Ankyloglossia congenital [Unknown]
  - Middle ear effusion [Unknown]
  - Laryngospasm [Unknown]
  - Selective eating disorder [Unknown]
  - Dyspnoea [Unknown]
  - Arthralgia [Unknown]
  - Malocclusion [Unknown]
  - Gastrooesophageal reflux disease [Unknown]
  - Micrognathia [Unknown]
  - Depressed level of consciousness [Unknown]
  - Cellulitis [Unknown]
  - Dehydration [Unknown]
  - Gastroenteritis [Unknown]
  - Vomiting [Unknown]
  - Ear pain [Unknown]
  - Oedema mucosal [Unknown]
  - Tachycardia [Unknown]
  - Vaginal infection [Unknown]
  - Pollakiuria [Unknown]
  - Learning disorder [Unknown]
  - Eustachian tube dysfunction [Unknown]
  - Diarrhoea [Unknown]
  - Injury [Unknown]
  - Dermatitis diaper [Unknown]
  - Sinus disorder [Unknown]
  - Pyrexia [Unknown]
  - Cystitis [Unknown]
  - Dermatitis atopic [Unknown]
  - Pharyngeal erythema [Unknown]
  - Vulval disorder [Unknown]
  - Hyperthermia malignant [Unknown]
  - Metabolic acidosis [Recovered/Resolved]
  - Adenoidal hypertrophy [Unknown]
  - Speech sound disorder [Unknown]
  - Dry skin [Unknown]
  - Abdominal pain [Unknown]
  - Vulvovaginitis [Unknown]
  - Otitis externa [Unknown]
  - Upper respiratory tract infection [Unknown]
  - Vulval abscess [Unknown]
  - Deafness [Unknown]
  - Cerumen impaction [Unknown]
  - Nasal congestion [Unknown]
  - Nasopharyngitis [Unknown]
  - Contusion [Unknown]
  - Arthropod bite [Unknown]
  - Constipation [Unknown]
  - Viral infection [Unknown]
  - Rhinitis allergic [Unknown]
  - Tonsillar hypertrophy [Unknown]
  - Herpangina [Unknown]
  - Dysuria [Unknown]
  - Ear infection [Unknown]
  - Attention deficit/hyperactivity disorder [Unknown]
  - Micturition urgency [Unknown]
  - Wheezing [Unknown]
  - Ear haemorrhage [Unknown]
  - Bronchospasm [Unknown]
  - Snoring [Unknown]
  - Foreign body in gastrointestinal tract [Unknown]
  - Rash [Unknown]
  - Encopresis [Unknown]
  - Vulvovaginal pain [Unknown]
  - Facial bones fracture [Unknown]
  - Otitis media chronic [Unknown]
  - Foetal exposure during pregnancy [Unknown]
  - Language disorder [Unknown]
  - Fluid imbalance [Unknown]
  - Oxygen saturation decreased [Unknown]
  - Upper-airway cough syndrome [Unknown]
  - Cough [Unknown]
  - Sleep apnoea syndrome [Unknown]
  - Scarlet fever [Unknown]
  - Tonsillitis [Unknown]
  - Ecchymosis [Unknown]
  - Ovarian cyst [Unknown]
  - Rhinitis [Unknown]
